FAERS Safety Report 14542814 (Version 1)
Quarter: 2018Q1

REPORT INFORMATION
  Report Type: Spontaneous
  Country: US (occurrence: US)
  Receive Date: 20180216
  Receipt Date: 20180216
  Transmission Date: 20180509
  Serious: Yes (Other)
  Sender: FDA-Public Use
  Company Number: US-OTSUKA-DJ201400932

PATIENT

DRUGS (1)
  1. ABILIFY [Suspect]
     Active Substance: ARIPIPRAZOLE
     Route: 065
     Dates: start: 2002, end: 2013

REACTIONS (12)
  - Seizure [Not Recovered/Not Resolved]
  - Dizziness [Unknown]
  - Dyspnoea [Unknown]
  - Fall [Unknown]
  - Nausea [Unknown]
  - Emotional disorder [Unknown]
  - Hand fracture [Unknown]
  - Incontinence [Unknown]
  - Neuroleptic malignant syndrome [Unknown]
  - White blood cell count decreased [Unknown]
  - Headache [Unknown]
  - Cerebrovascular accident [Unknown]

NARRATIVE: CASE EVENT DATE: 2011
